FAERS Safety Report 20113362 (Version 1)
Quarter: 2021Q4

REPORT INFORMATION
  Report Type: Spontaneous
  Country: US (occurrence: US)
  Receive Date: 20211125
  Receipt Date: 20211125
  Transmission Date: 20220303
  Serious: No
  Sender: FDA-Public Use
  Company Number: US-GSKCCFUS-Case-01219507_AE-71455

PATIENT
  Sex: Female

DRUGS (1)
  1. BREO ELLIPTA [Suspect]
     Active Substance: FLUTICASONE FUROATE\VILANTEROL TRIFENATATE
     Indication: Product used for unknown indication
     Dosage: UNK, 100
     Dates: start: 202110, end: 2021

REACTIONS (3)
  - Dysphonia [Not Recovered/Not Resolved]
  - Condition aggravated [Unknown]
  - Therapy cessation [Unknown]

NARRATIVE: CASE EVENT DATE: 20210101
